FAERS Safety Report 6200922-5 (Version None)
Quarter: 2009Q2

REPORT INFORMATION
  Report Type: 
  Country: None (occurrence: None)
  Receive Date: 20090523
  Receipt Date: 20081203
  Transmission Date: 20091009
  Serious: No
  Sender: FDA-Public Use
  Company Number: US-ALEXION-A200800350

PATIENT
  Age: 61 Year
  Sex: Male

DRUGS (3)
  1. SOLIRIS [Suspect]
     Indication: PAROXYSMAL NOCTURNAL HAEMOGLOBINURIA
     Dosage: 600 MG, QW
     Route: 042
     Dates: start: 20081003
  2. SOLIRIS [Suspect]
     Dosage: 900 MG, Q2W
     Route: 042
     Dates: start: 20080101
  3. PROCRIT /00909301/ [Concomitant]

REACTIONS (1)
  - MOUTH HAEMORRHAGE [None]
